FAERS Safety Report 5313724-9 (Version None)
Quarter: 2007Q2

REPORT INFORMATION
  Report Type: 
  Country: None (occurrence: None)
  Receive Date: 20070425
  Receipt Date: 20070411
  Transmission Date: 20071010
  Serious: Yes (Hospitalization)
  Sender: FDA-Public Use
  Company Number: 02100-JPN-07-0196

PATIENT
  Age: 79 Year
  Sex: Male

DRUGS (8)
  1. CILOSTAZOL [Suspect]
     Indication: ARTERIOSCLEROSIS OBLITERANS
     Dosage: 200 MG, ORAL
     Route: 048
     Dates: start: 20070314, end: 20070315
  2. SARPOGRELATE HYDROCHLORIDE [Concomitant]
  3. NICERGOLINE [Concomitant]
  4. AMANTADINE HCL [Concomitant]
  5. CARBIDOPA AND LEVODOPA [Concomitant]
  6. GLIMEPIRIDE [Concomitant]
  7. IMIDAPRIL [Concomitant]
  8. OLOPATADINE [Concomitant]

REACTIONS (5)
  - ATRIAL FIBRILLATION [None]
  - LOSS OF CONSCIOUSNESS [None]
  - PALLOR [None]
  - THROMBOSIS [None]
  - TRANSIENT ISCHAEMIC ATTACK [None]
